FAERS Safety Report 11232119 (Version 4)
Quarter: 2015Q3

REPORT INFORMATION
  Report Type: Spontaneous
  Country: RO (occurrence: RO)
  Receive Date: 20150701
  Receipt Date: 20150811
  Transmission Date: 20151125
  Serious: Yes (Death)
  Sender: FDA-Public Use
  Company Number: RO-BAYER-2015-368397

PATIENT
  Age: 58 Year
  Sex: Male

DRUGS (10)
  1. PROPRANOLOL [Concomitant]
     Active Substance: PROPRANOLOL\PROPRANOLOL HYDROCHLORIDE
     Dosage: UNK
     Route: 048
     Dates: end: 2015
  2. FUROSEMID [Concomitant]
     Active Substance: FUROSEMIDE
     Dosage: UNK
     Route: 048
  3. SILIMARIN [Concomitant]
     Dosage: UNK
     Route: 048
     Dates: end: 2015
  4. NEXAVAR [Suspect]
     Active Substance: SORAFENIB
     Indication: HEPATOCELLULAR CARCINOMA
     Dosage: DAILY DOSE 800 MG
     Route: 048
     Dates: start: 20141124, end: 201506
  5. CONTROLOC [Concomitant]
     Active Substance: PANTOPRAZOLE SODIUM
     Dosage: UNK
     Route: 048
  6. URSOFALK [Concomitant]
     Active Substance: URSODIOL
     Dosage: DAILY DOSE 1500 MG
     Route: 048
     Dates: end: 2015
  7. HEPA MERZ [ORNITHINE ASPARTATE] [Concomitant]
     Dosage: UNK
     Route: 048
     Dates: end: 2015
  8. ASPACARDIN [ASPARTIC ACID,MAGNESIUM ASPARTATE] [Concomitant]
     Route: 048
  9. NORMIX [Concomitant]
     Active Substance: RIFAXIMIN
     Dosage: UNK
     Route: 048
  10. VITAMIN E [TOCOPHEROL] [Concomitant]
     Dosage: UNK
     Route: 048
     Dates: end: 2015

REACTIONS (2)
  - Suspected counterfeit product [None]
  - Death [Fatal]

NARRATIVE: CASE EVENT DATE: 20150619
